FAERS Safety Report 15330080 (Version 1)
Quarter: 2018Q3

REPORT INFORMATION
  Report Type: Spontaneous
  Country: US (occurrence: US)
  Receive Date: 20180824
  Receipt Date: 20180824
  Transmission Date: 20181010
  Serious: Yes (Other)
  Sender: FDA-Public Use
  Company Number: None

PATIENT
  Age: 67 Year
  Sex: Male
  Weight: 111.37 kg

DRUGS (11)
  1. ATORVASTATIN CALCIUM 40MG TAB [Concomitant]
  2. SPIRONOLACTONE 25MG TAB [Concomitant]
  3. METOPROLOL SUCCINATE 100MG [Concomitant]
  4. FUROSEMIDE 40MG TAB [Concomitant]
  5. INSULIN,GLARGINE,HUMAN 100 [Concomitant]
  6. DABIGATRAN ETEXILATE 150MG ORAL CAP [Concomitant]
  7. OMEPRAZOLE 20MG EC CAP [Concomitant]
  8. HARVONI [Suspect]
     Active Substance: LEDIPASVIR\SOFOSBUVIR
  9. DOFETILIDE 500MCG CAP [Concomitant]
     Active Substance: DOFETILIDE
  10. INSULIN,ASPART,HUMAN 100 UNIT/ML [Concomitant]
  11. LISINOPRIL 20MG TAB [Concomitant]

REACTIONS (4)
  - Hepatic cyst [None]
  - Aspartate aminotransferase increased [None]
  - Cholangiocarcinoma [None]
  - Alanine aminotransferase increased [None]
